FAERS Safety Report 4369048-X (Version None)
Quarter: 2004Q2

REPORT INFORMATION
  Report Type: 
  Country: None (occurrence: None)
  Receive Date: 20040527
  Receipt Date: 20040518
  Transmission Date: 20050107
  Serious: Yes (Hospitalization)
  Sender: FDA-Public Use
  Company Number: 2004-01932

PATIENT
  Age: 75 Year
  Sex: Female
  Weight: 48.1 kg

DRUGS (14)
  1. OXYTROL [Suspect]
     Indication: MICTURITION URGENCY
     Dosage: 1 PATCH, 2/WEEK, TRANSDERMAL
     Route: 062
     Dates: start: 20040418
  2. OXYTROL [Suspect]
     Indication: URINARY INCONTINENCE
     Dosage: 1 PATCH, 2/WEEK, TRANSDERMAL
     Route: 062
     Dates: start: 20040418
  3. LORATADINE [Concomitant]
  4. PRILOSEC [Concomitant]
  5. BENTYL [Concomitant]
  6. ATENOLOL [Concomitant]
  7. CLONAZEPAM [Concomitant]
  8. REMERON [Concomitant]
  9. ACETYLSALICYLIC ACID SRT [Concomitant]
  10. OPTH-CON [Concomitant]
  11. LOVASTATIN [Concomitant]
  12. CARDURA [Concomitant]
  13. UNSPECIFIED NASAL SPRAY [Concomitant]
  14. IPRATROPIUM BROMIDE [Concomitant]

REACTIONS (1)
  - LUNG ABSCESS [None]
